FAERS Safety Report 22965195 (Version 2)
Quarter: 2025Q2

REPORT INFORMATION
  Report Type: Spontaneous
  Country: IT (occurrence: IT)
  Receive Date: 20230921
  Receipt Date: 20250618
  Transmission Date: 20250716
  Serious: Yes (Hospitalization)
  Sender: TEVA
  Company Number: None

PATIENT
  Age: 3 Year
  Sex: Male
  Weight: 16 kg

DRUGS (5)
  1. METHOTREXATE [Interacting]
     Active Substance: METHOTREXATE
     Indication: B-cell type acute leukaemia
     Route: 050
     Dates: start: 20221004, end: 20221004
  2. METHOTREXATE [Interacting]
     Active Substance: METHOTREXATE
     Indication: B-cell type acute leukaemia
     Route: 042
     Dates: start: 20221004, end: 20221004
  3. MERCAPTOPURINE [Suspect]
     Active Substance: MERCAPTOPURINE
     Indication: B-cell type acute leukaemia
     Dosage: 8 ML, QD (160 MG /DAY) THE PROTOCOL CALLED FOR AN ADMINISTRATION OF 16 MG/DAY WHEN INSTEAD A DOSE...
     Route: 048
     Dates: start: 20220929, end: 20221003
  4. TARGOSID [Concomitant]
     Active Substance: TEICOPLANIN
     Indication: Staphylococcal infection
     Route: 042
     Dates: start: 20221003, end: 20221003
  5. MYCOSTATIN [Concomitant]
     Active Substance: NYSTATIN
     Indication: Product used for unknown indication
     Route: 048

REACTIONS (5)
  - Hepatotoxicity [Recovered/Resolved]
  - Incorrect product dosage form administered [Recovered/Resolved]
  - Potentiating drug interaction [Recovered/Resolved]
  - Incorrect dose administered [Unknown]
  - Dose calculation error [Unknown]

NARRATIVE: CASE EVENT DATE: 20220929
